FAERS Safety Report 5960695-8 (Version None)
Quarter: 2008Q4

REPORT INFORMATION
  Report Type: 
  Country: None (occurrence: None)
  Receive Date: 20081120
  Receipt Date: 20081112
  Transmission Date: 20090506
  Serious: Yes (Other)
  Sender: FDA-Public Use
  Company Number: US-PFIZER INC-2008019543

PATIENT
  Sex: Male
  Weight: 63.5 kg

DRUGS (1)
  1. CHANTIX [Suspect]
     Indication: SMOKING CESSATION THERAPY
     Dates: start: 20071001, end: 20080201

REACTIONS (11)
  - AGITATION [None]
  - ANGER [None]
  - ANXIETY [None]
  - DEPRESSION [None]
  - DIVORCED [None]
  - HOT FLUSH [None]
  - LOSS OF EMPLOYMENT [None]
  - MENTAL DISORDER [None]
  - NAUSEA [None]
  - TONSILLECTOMY [None]
  - VOMITING [None]
